FAERS Safety Report 6645677-5 (Version None)
Quarter: 2010Q1

REPORT INFORMATION
  Report Type: 
  Country: None (occurrence: None)
  Receive Date: 20100323
  Receipt Date: 20100309
  Transmission Date: 20100710
  Serious: Yes (Hospitalization)
  Sender: FDA-Public Use
  Company Number: US-ELI_LILLY_AND_COMPANY-US201003004377

PATIENT
  Sex: Female

DRUGS (5)
  1. EVISTA [Suspect]
     Indication: OSTEOPOROSIS
     Dates: end: 20081001
  2. HUMALOG [Suspect]
     Indication: DIABETES MELLITUS
     Dosage: UNK, UNKNOWN
  3. FORTEO /USA/ [Concomitant]
     Dosage: UNK, UNKNOWN
     Dates: start: 20090202
  4. NOVOLIN [Concomitant]
  5. ACTONEL [Concomitant]

REACTIONS (4)
  - DRUG INEFFECTIVE [None]
  - INFECTION [None]
  - NEUROPATHY PERIPHERAL [None]
  - WEIGHT DECREASED [None]
